FAERS Safety Report 9213783 (Version 2)
Quarter: 2014Q1

REPORT INFORMATION
  Report Type: Spontaneous
  Country: US (occurrence: US)
  Receive Date: 20130405
  Receipt Date: 20140114
  Transmission Date: 20141002
  Serious: Yes (Other)
  Sender: FDA-Public Use
  Company Number: US-BAYER-2013-040532

PATIENT
  Age: 34 Year
  Sex: Female

DRUGS (9)
  1. YAZ [Suspect]
     Dosage: UNK
     Dates: start: 2004
  2. YASMIN [Suspect]
     Dosage: UNK
     Dates: start: 2004
  3. AZITHROMYCIN [Concomitant]
     Dosage: 500 MG, UNK
  4. FISH OIL [Concomitant]
  5. MVI [Concomitant]
  6. ZANTAC [Concomitant]
  7. OMEPRAZOLE [Concomitant]
  8. OMEPRAZOLE [Concomitant]
  9. CLINDAMYCIN [Concomitant]

REACTIONS (7)
  - Gallbladder injury [None]
  - Biliary dyskinesia [None]
  - Cholecystitis [None]
  - Pain [None]
  - Injury [None]
  - Pain [None]
  - Fear of disease [None]
